FAERS Safety Report 9416532 (Version 2)
Quarter: 2013Q3

REPORT INFORMATION
  Report Type: Spontaneous
  Country: US (occurrence: US)
  Receive Date: 20130724
  Receipt Date: 20130805
  Transmission Date: 20140515
  Serious: Yes (Other)
  Sender: FDA-Public Use
  Company Number: US-JNJFOC-20130710793

PATIENT
  Age: 45 Year
  Sex: Female

DRUGS (8)
  1. REMICADE [Suspect]
     Indication: RHEUMATOID ARTHRITIS
     Route: 042
     Dates: start: 20130516
  2. BENADRYL [Concomitant]
     Indication: PREMEDICATION
     Route: 042
     Dates: start: 20130516
  3. TYLENOL [Concomitant]
     Indication: PREMEDICATION
     Route: 048
     Dates: start: 20130516
  4. PREDNISONE [Concomitant]
     Indication: RHEUMATOID ARTHRITIS
     Route: 065
     Dates: start: 2012
  5. METHOTREXATE [Concomitant]
     Indication: RHEUMATOID ARTHRITIS
     Route: 065
     Dates: start: 2012
  6. FOLIC ACID [Concomitant]
     Indication: RHEUMATOID ARTHRITIS
     Route: 065
     Dates: start: 2012
  7. FOSAMAX [Concomitant]
     Indication: OSTEOPOROSIS PROPHYLAXIS
     Route: 065
     Dates: start: 2012
  8. CALCIUM WITH VITAMIN D [Concomitant]
     Indication: OSTEOPOROSIS PROPHYLAXIS
     Dosage: 500 MG-600 U, 1 CAP BID
     Route: 065
     Dates: start: 2012

REACTIONS (8)
  - Urticaria [Recovered/Resolved]
  - Respiratory distress [Recovered/Resolved]
  - Hypoxia [Recovered/Resolved]
  - Infusion related reaction [Recovered/Resolved]
  - Palpitations [Recovered/Resolved]
  - Face oedema [Recovered/Resolved]
  - Hyperhidrosis [Recovered/Resolved]
  - Rash [Recovered/Resolved]
